FAERS Safety Report 16666015 (Version 1)
Quarter: 2019Q3

REPORT INFORMATION
  Report Type: Report from Study
  Country: BR (occurrence: BR)
  Receive Date: 20190805
  Receipt Date: 20190805
  Transmission Date: 20191004
  Serious: Yes (Hospitalization)
  Sender: FDA-Public Use
  Company Number: BR-EMD SERONO-9107916

PATIENT
  Sex: Female

DRUGS (2)
  1. REBIF [Suspect]
     Active Substance: INTERFERON BETA-1A
     Indication: PRODUCT USED FOR UNKNOWN INDICATION
     Route: 058
     Dates: start: 20150201
  2. VITAMIN D                          /00107901/ [Concomitant]
     Active Substance: ERGOCALCIFEROL
     Indication: PRODUCT USED FOR UNKNOWN INDICATION

REACTIONS (8)
  - Pollakiuria [Not Recovered/Not Resolved]
  - Fall [Recovered/Resolved]
  - Injection site erythema [Not Recovered/Not Resolved]
  - Faeces hard [Not Recovered/Not Resolved]
  - Gait disturbance [Recovered/Resolved]
  - Hospitalisation [Recovered/Resolved]
  - Dyschezia [Not Recovered/Not Resolved]
  - Treatment noncompliance [Recovered/Resolved]

NARRATIVE: CASE EVENT DATE: 2019
